FAERS Safety Report 6838117-4 (Version None)
Quarter: 2010Q3

REPORT INFORMATION
  Report Type: 
  Country: None (occurrence: None)
  Receive Date: 20100713
  Receipt Date: 20070531
  Transmission Date: 20110219
  Serious: No
  Sender: FDA-Public Use
  Company Number: US-PFIZER INC-2007035656

PATIENT
  Sex: Female
  Weight: 46.72 kg

DRUGS (5)
  1. CHANTIX [Suspect]
     Indication: SMOKING CESSATION THERAPY
     Dates: start: 20070418, end: 20070501
  2. PRINZIDE [Concomitant]
     Indication: HYPERTENSION
  3. PAXIL [Concomitant]
     Indication: DEPRESSION
  4. IBUPROFEN [Concomitant]
  5. HYDROCODONE BITARTRATE [Concomitant]
     Indication: BACK INJURY

REACTIONS (13)
  - ABNORMAL DREAMS [None]
  - ANXIETY [None]
  - DEPRESSION [None]
  - DYSPNOEA [None]
  - FEELING ABNORMAL [None]
  - FLATULENCE [None]
  - INSOMNIA [None]
  - MUSCLE TWITCHING [None]
  - NAUSEA [None]
  - POLLAKIURIA [None]
  - TREMOR [None]
  - VOMITING [None]
  - VOMITING PROJECTILE [None]
